FAERS Safety Report 16556408 (Version 1)
Quarter: 2019Q3

REPORT INFORMATION
  Report Type: Spontaneous
  Country: US (occurrence: US)
  Receive Date: 20190710
  Receipt Date: 20190710
  Transmission Date: 20191004
  Serious: No
  Sender: FDA-Public Use
  Company Number: US-ASTRAZENECA-2019SE87588

PATIENT

DRUGS (1)
  1. SYMBICORT [Suspect]
     Active Substance: BUDESONIDE\FORMOTEROL FUMARATE DIHYDRATE
     Indication: BRONCHIAL HYPERREACTIVITY
     Dosage: 80\4.5 UNKNOWN UNKNOWN
     Route: 055

REACTIONS (5)
  - Throat tightness [Unknown]
  - Off label use [Unknown]
  - Dysphonia [Unknown]
  - Product use in unapproved indication [Unknown]
  - Throat irritation [Unknown]
